FAERS Safety Report 7455940-6 (Version None)
Quarter: 2011Q2

REPORT INFORMATION
  Report Type: 
  Country: None (occurrence: None)
  Receive Date: 20110503
  Receipt Date: 20110429
  Transmission Date: 20111010
  Serious: Yes (Death, Hospitalization)
  Sender: FDA-Public Use
  Company Number: PHHY2011NO36244

PATIENT
  Age: 57 Year
  Sex: Female

DRUGS (1)
  1. METFORMIN HYDROCHLORIDE [Suspect]
     Indication: DIABETES MELLITUS
     Dosage: UNK UKN, UNK
     Route: 048

REACTIONS (3)
  - CARDIAC ARREST [None]
  - METABOLIC ACIDOSIS [None]
  - DIARRHOEA [None]
